FAERS Safety Report 9097286 (Version 1)
Quarter: 2013Q1

REPORT INFORMATION
  Report Type: Spontaneous
  Country: US (occurrence: US)
  Receive Date: 20130212
  Receipt Date: 20130212
  Transmission Date: 20140127
  Serious: Yes (Life-Threatening, Hospitalization, Disabling, Other)
  Sender: FDA-Public Use
  Company Number: US-009507513-0410USA00029

PATIENT
  Sex: Female
  Weight: 79.38 kg

DRUGS (9)
  1. MK-0966 [Suspect]
     Indication: OSTEOARTHRITIS
     Dosage: 25 MG, QD
     Route: 048
     Dates: start: 20020201, end: 20040301
  2. MK-0966 [Suspect]
     Indication: ARTHRITIS
  3. PREMARIN [Concomitant]
     Dates: start: 1987, end: 2004
  4. PREVACID [Concomitant]
  5. PRAVASTATIN SODIUM [Concomitant]
  6. AYGESTIN [Concomitant]
  7. THERAPY UNSPECIFIED [Concomitant]
  8. THERAPY UNSPECIFIED [Concomitant]
     Indication: CARDIAC DISORDER
  9. ZITHROMAX [Concomitant]

REACTIONS (43)
  - Myocardial infarction [Recovered/Resolved]
  - Deep vein thrombosis [Unknown]
  - Gastrointestinal haemorrhage [Recovered/Resolved]
  - Colitis ulcerative [Unknown]
  - Glucose tolerance impaired [Unknown]
  - Anxiety [Unknown]
  - Abnormal behaviour [Unknown]
  - Crohn^s disease [Unknown]
  - Abscess [Unknown]
  - Oedema [Unknown]
  - Myocardial ischaemia [Unknown]
  - Cough [Unknown]
  - Pneumonia [Unknown]
  - Haemoptysis [Unknown]
  - Atrial thrombosis [Recovered/Resolved]
  - Pleural effusion [Unknown]
  - Transaminases increased [Unknown]
  - Hepatic congestion [Unknown]
  - Thrombophlebitis [Unknown]
  - Hiatus hernia [Unknown]
  - Ventricular tachycardia [Unknown]
  - Intracardiac thrombus [Unknown]
  - Coronary artery disease [Unknown]
  - Colitis ulcerative [Unknown]
  - Basal cell carcinoma [Unknown]
  - Obesity [Unknown]
  - Visual acuity reduced [Unknown]
  - Bronchitis [Unknown]
  - Cardiac failure congestive [Unknown]
  - Left ventricular dysfunction [Unknown]
  - Sudden cardiac death [Unknown]
  - Fibromyalgia [Unknown]
  - Colitis [Unknown]
  - Treatment noncompliance [Unknown]
  - Crohn^s disease [Unknown]
  - Myocardial infarction [Unknown]
  - Ischaemic cardiomyopathy [Unknown]
  - Salivary gland cyst [Unknown]
  - Chronic obstructive pulmonary disease [Unknown]
  - Cardiac disorder [Unknown]
  - Leukocytoclastic vasculitis [Unknown]
  - Arteriosclerosis [Unknown]
  - Arthralgia [Unknown]
